FAERS Safety Report 17139287 (Version 2)
Quarter: 2020Q1

REPORT INFORMATION
  Report Type: Spontaneous
  Country: AT (occurrence: AT)
  Receive Date: 20191211
  Receipt Date: 20200106
  Transmission Date: 20200409
  Serious: Yes (Death, Life-Threatening)
  Sender: FDA-Public Use
  Company Number: AT-ACCORD-164298

PATIENT
  Age: 80 Year
  Sex: Female

DRUGS (2)
  1. ELIQUIS [Concomitant]
     Active Substance: APIXABAN
  2. GEMCITABINE ACCORD [Suspect]
     Active Substance: GEMCITABINE HYDROCHLORIDE
     Indication: PANCREATIC CARCINOMA
     Dosage: STRENGTH 2 G, 1876 MG, 5 DOSES
     Route: 042
     Dates: start: 20191004, end: 20191111

REACTIONS (14)
  - Critical illness [Fatal]
  - Haemolytic uraemic syndrome [Unknown]
  - Epilepsy [Unknown]
  - Liver abscess [Unknown]
  - Atelectasis [Unknown]
  - Erysipelas [Unknown]
  - Pleural effusion [Unknown]
  - Sepsis [Unknown]
  - Subdural hygroma [Unknown]
  - Hypoalbuminaemia [Unknown]
  - Acute kidney injury [Unknown]
  - Generalised oedema [Unknown]
  - Thrombophlebitis [Unknown]
  - Pancytopenia [Unknown]

NARRATIVE: CASE EVENT DATE: 201911
